FAERS Safety Report 9019422 (Version 2)
Quarter: 2013Q1

REPORT INFORMATION
  Report Type: Spontaneous
  Country: US (occurrence: US)
  Receive Date: 20130119
  Receipt Date: 20130130
  Transmission Date: 20140127
  Serious: Yes (Hospitalization, Other)
  Sender: FDA-Public Use
  Company Number: US-AMGEN-USASP2013002179

PATIENT
  Age: 93 Year
  Sex: Female
  Weight: 52.15 kg

DRUGS (2)
  1. PROLIA [Suspect]
     Indication: OSTEOPOROSIS POSTMENOPAUSAL
     Dosage: 60 MG, UNK
     Route: 058
     Dates: start: 20121217
  2. COUMADIN                           /00014802/ [Suspect]
     Indication: PULMONARY EMBOLISM
     Dosage: UNK
     Route: 048
     Dates: start: 1980

REACTIONS (5)
  - Infection [Unknown]
  - Paralysis [Unknown]
  - Mobility decreased [Unknown]
  - Gastrointestinal haemorrhage [Recovered/Resolved]
  - Pain in extremity [Unknown]
